FAERS Safety Report 24327317 (Version 2)
Quarter: 2024Q4

REPORT INFORMATION
  Report Type: Spontaneous
  Country: US (occurrence: US)
  Receive Date: 20240917
  Receipt Date: 20241216
  Transmission Date: 20250114
  Serious: No
  Sender: BRISTOL-MYERS SQUIBB COMPANY
  Company Number: US-BRISTOL-MYERS SQUIBB COMPANY-2024-146983

PATIENT
  Age: 41 Year
  Sex: Male

DRUGS (2)
  1. OPDIVO [Suspect]
     Active Substance: NIVOLUMAB
     Indication: Mesothelioma
     Dosage: OPDIVO 240 MG AND 120 MG VIAL
     Route: 042
     Dates: start: 20240724, end: 20240724
  2. YERVOY [Suspect]
     Active Substance: IPILIMUMAB
     Indication: Mesothelioma
     Dosage: YERVOY 2X 50 MG VIALS
     Route: 042
     Dates: start: 20240724, end: 20240724

REACTIONS (1)
  - Hypertension [Unknown]
